FAERS Safety Report 5921573-3 (Version None)
Quarter: 2008Q4

REPORT INFORMATION
  Report Type: 
  Country: None (occurrence: None)
  Receive Date: 20081016
  Receipt Date: 20081016
  Transmission Date: 20090506
  Serious: Yes (Hospitalization, Other)
  Sender: FDA-Public Use
  Company Number: None

PATIENT
  Age: 20 Year
  Sex: Female
  Weight: 62.5964 kg

DRUGS (1)
  1. MINOCYCLINE HCL [Suspect]
     Indication: ACNE
     Dosage: 100MG BID PO
     Route: 048
     Dates: start: 20061228

REACTIONS (3)
  - ARTHRALGIA [None]
  - AUTOIMMUNE HEPATITIS [None]
  - MYALGIA [None]
